FAERS Safety Report 6443422-X (Version None)
Quarter: 2009Q4

REPORT INFORMATION
  Report Type: 
  Country: None (occurrence: None)
  Receive Date: 20091117
  Receipt Date: 20091105
  Transmission Date: 20100525
  Serious: Yes (Other)
  Sender: FDA-Public Use
  Company Number: CA-PFIZER INC-2009286509

PATIENT
  Age: 59 Year
  Sex: Female

DRUGS (9)
  1. LYRICA [Suspect]
     Indication: COMPLEX REGIONAL PAIN SYNDROME
     Dosage: 150 MG, 3X/DAY
     Route: 048
     Dates: start: 20080201, end: 20090829
  2. CELEXA [Suspect]
     Indication: DEPRESSION
     Dosage: 50 MG, 1X/DAY
     Route: 048
     Dates: start: 20070101, end: 20090829
  3. OXYCONTIN [Concomitant]
     Indication: PAIN
     Dosage: 70 MG DAILY (40MG AM; 10MG AFTERNOON; 20MG PM)
     Dates: start: 20070101, end: 20090901
  4. ATACAND [Concomitant]
     Indication: CARDIOVASCULAR DISORDER
     Dosage: 8 MG, 1X/DAY
     Route: 048
     Dates: start: 20070101
  5. LASIX [Concomitant]
     Indication: CARDIOVASCULAR DISORDER
     Dosage: 20 MG, 1X/DAY
     Dates: start: 20070101
  6. NITROGLYCERIN [Concomitant]
     Indication: CARDIOVASCULAR DISORDER
     Dosage: 0.4 MG, 1X/DAY
     Route: 062
     Dates: start: 20070101
  7. LIPITOR [Concomitant]
     Indication: CARDIOVASCULAR DISORDER
     Dosage: 10 MG, 1X/DAY
     Route: 048
     Dates: start: 20070101
  8. ASPIRIN [Concomitant]
     Indication: CARDIOVASCULAR DISORDER
     Dosage: 325 MG, 1X/DAY
     Route: 048
     Dates: start: 20070101
  9. ATENOLOL [Concomitant]
     Indication: CARDIOVASCULAR DISORDER
     Dosage: 50 MG, 1X/DAY
     Dates: start: 20070101

REACTIONS (1)
  - SEROTONIN SYNDROME [None]
